FAERS Safety Report 8580831 (Version 5)
Quarter: 2012Q4

REPORT INFORMATION
  Report Type: 
  Country: US (occurrence: US)
  Receive Date: 20120525
  Receipt Date: 20121023
  Transmission Date: 20130627
  Serious: Yes (Death, Hospitalization, Other)
  Sender: FDA-Public Use
  Company Number: US-B.I. PHARMACEUTICALS,INC./RIDGEFIELD-2012-BP-11265BP

PATIENT
  Age: 79 Year
  Sex: Male
  Weight: 78.02 kg

DRUGS (11)
  1. TRADJENTA [Suspect]
     Indication: TYPE 2 DIABETES MELLITUS
     Dosage: 5 mg
     Dates: start: 20120221, end: 20120324
  2. SIMVASTATIN [Suspect]
     Indication: BLOOD CHOLESTEROL INCREASED
     Dates: start: 20050209, end: 20120324
  3. ZOCOR [Concomitant]
  4. ACE INHIBITOR [Concomitant]
  5. ARB [Concomitant]
  6. CIPRO [Concomitant]
     Indication: URINARY TRACT INFECTION
  7. TOPOROL XL [Concomitant]
     Indication: HYPERTENSION
     Dosage: 50 mg
     Dates: end: 20120324
  8. COLTRAZINE [Concomitant]
     Indication: GOUT
  9. LASIX [Concomitant]
     Indication: CARDIAC FAILURE CONGESTIVE
     Dosage: 40 mg
     Dates: end: 20120324
  10. TERAZOSIN [Concomitant]
     Indication: BENIGN PROSTATIC HYPERPLASIA
     Dates: end: 20120324
  11. COLCHICINE [Concomitant]
     Indication: GOUT
     Dosage: 1.2 mg
     Dates: end: 20120324

REACTIONS (4)
  - Rhabdomyolysis [Fatal]
  - Renal failure [Fatal]
  - Acute respiratory distress syndrome [Fatal]
  - Potentiating drug interaction [Unknown]
